FAERS Safety Report 24670955 (Version 2)
Quarter: 2025Q1

REPORT INFORMATION
  Report Type: Spontaneous
  Country: BE (occurrence: BE)
  Receive Date: 20241127
  Receipt Date: 20250212
  Transmission Date: 20250408
  Serious: Yes (Other)
  Sender: FERRING
  Company Number: BE-FERRINGPH-2024FE06494

PATIENT

DRUGS (3)
  1. MENOPUR [Suspect]
     Active Substance: FOLLITROPIN\LUTEINIZING HORMONE
     Indication: In vitro fertilisation
     Route: 058
     Dates: end: 20241006
  2. MENOPUR [Suspect]
     Active Substance: FOLLITROPIN\LUTEINIZING HORMONE
     Indication: In vitro fertilisation
     Dosage: 300 INTERNATIONAL UNIT, DAILY
     Route: 058
     Dates: start: 20240929, end: 20241002
  3. CORIFOLLITROPIN ALFA [Concomitant]
     Active Substance: CORIFOLLITROPIN ALFA
     Indication: In vitro fertilisation
     Route: 065

REACTIONS (2)
  - Ectopic pregnancy [Recovered/Resolved]
  - Wrong technique in product usage process [Recovered/Resolved]
